FAERS Safety Report 13145158 (Version 2)
Quarter: 2017Q1

REPORT INFORMATION
  Report Type: Spontaneous
  Country: GB (occurrence: GB)
  Receive Date: 20170124
  Receipt Date: 20170206
  Transmission Date: 20170428
  Serious: Yes (Life-Threatening, Hospitalization, Other)
  Sender: FDA-Public Use
  Company Number: GB-AUROBINDO-AUR-APL-2017-13106

PATIENT
  Age: 47 Year
  Sex: Male

DRUGS (4)
  1. DIAZEPAM. [Interacting]
     Active Substance: DIAZEPAM
     Indication: SCHIZOPHRENIA
     Dosage: 420 MG, UNK
     Route: 065
  2. OLANZAPINE. [Interacting]
     Active Substance: OLANZAPINE
     Indication: SCHIZOPHRENIA
     Dosage: 1.16 G, UNK
     Route: 065
  3. ZOPICLONE [Interacting]
     Active Substance: ZOPICLONE
     Indication: SCHIZOPHRENIA
     Dosage: 735 MG, UNK
  4. VENLAFAXINE [Suspect]
     Active Substance: VENLAFAXINE HYDROCHLORIDE
     Indication: SCHIZOPHRENIA
     Dosage: 11.7 G, UNK
     Route: 065

REACTIONS (13)
  - Overdose [Unknown]
  - Abdominal distension [Unknown]
  - Abdominal discomfort [Recovered/Resolved]
  - Hypotension [Unknown]
  - Tachycardia [Unknown]
  - Multiple organ dysfunction syndrome [Not Recovered/Not Resolved]
  - Drug interaction [Unknown]
  - Acidosis [Unknown]
  - Hyperkalaemia [Unknown]
  - Electrocardiogram QT prolonged [Unknown]
  - Loss of consciousness [Unknown]
  - Coma [Unknown]
  - Acute kidney injury [Not Recovered/Not Resolved]
